FAERS Safety Report 4542232-8 (Version None)
Quarter: 2004Q4

REPORT INFORMATION
  Report Type: 
  Country: None (occurrence: None)
  Receive Date: 20041227
  Receipt Date: 20041221
  Transmission Date: 20050328
  Serious: Yes (Other)
  Sender: FDA-Public Use
  Company Number: HQWYE133221DEC04

PATIENT
  Age: 56 Year
  Sex: Female
  Weight: 69.46 kg

DRUGS (1)
  1. NEORAL [Suspect]
     Indication: PROPHYLAXIS AGAINST TRANSPLANT REJECTION
     Dosage: 75 MG 2X PER Q DAY, ORAL
     Route: 048
     Dates: start: 20030605, end: 20041213

REACTIONS (1)
  - LUNG ADENOCARCINOMA [None]
